FAERS Safety Report 9580445 (Version 1)
Quarter: 2013Q4

REPORT INFORMATION
  Report Type: Spontaneous
  Country: BR (occurrence: BR)
  Receive Date: 20131002
  Receipt Date: 20131002
  Transmission Date: 20140711
  Serious: Yes (Other)
  Sender: FDA-Public Use
  Company Number: BR-SA-2013SA095884

PATIENT
  Age: 61 Year
  Sex: Female
  Weight: 62 kg

DRUGS (9)
  1. LANTUS SOLOSTAR [Suspect]
     Indication: TYPE 2 DIABETES MELLITUS
     Route: 058
     Dates: start: 2012
  2. AAS [Concomitant]
     Indication: ANTICOAGULANT THERAPY
     Dosage: STRENGTH: 100 MG
     Route: 048
     Dates: start: 201304
  3. OLCADIL [Concomitant]
     Indication: SLEEP DISORDER
     Route: 048
     Dates: start: 2011
  4. CYMBALTA [Concomitant]
     Indication: ANXIETY
     Dosage: STRENGTH: 30 MG
     Route: 048
     Dates: start: 2011
  5. PRESS PLUS [Concomitant]
     Indication: HYPERTENSION
     Dosage: STRENGTH:1 0 MG
     Route: 048
     Dates: start: 201304
  6. ALDACTONE [Concomitant]
     Indication: ARRHYTHMIA
     Dosage: STRENGTH: 25 MG
     Route: 048
     Dates: start: 201304
  7. SELOZOK [Concomitant]
     Indication: HEART RATE IRREGULAR
     Dosage: STRENGTH: 100 MG
     Route: 048
     Dates: start: 201304
  8. LIPITOR [Concomitant]
     Indication: BLOOD CHOLESTEROL
     Dosage: STRENGTH: 80 MG
     Route: 048
     Dates: start: 201304
  9. SOLOSTAR [Concomitant]
     Dates: start: 2012

REACTIONS (3)
  - Cardiac failure [Recovering/Resolving]
  - Dyspnoea [Recovering/Resolving]
  - Fatigue [Recovering/Resolving]
